FAERS Safety Report 9293471 (Version 1)
Quarter: 2013Q2

REPORT INFORMATION
  Report Type: Spontaneous
  Country: US (occurrence: US)
  Receive Date: 20130516
  Receipt Date: 20130516
  Transmission Date: 20140414
  Serious: Yes (Other)
  Sender: FDA-Public Use
  Company Number: US-GLAXOSMITHKLINE-A1013144A

PATIENT
  Age: 55 Year
  Sex: Female
  Weight: 56.8 kg

DRUGS (21)
  1. FLOLAN [Suspect]
     Indication: COR PULMONALE CHRONIC
     Dosage: 87NGKM CONTINUOUS
     Route: 042
     Dates: start: 20100903
  2. OXYCODONE [Concomitant]
  3. CHLORASEPTIC SPRAY [Concomitant]
  4. COUMADIN [Concomitant]
  5. LASIX [Concomitant]
  6. BACTRIM [Concomitant]
  7. MULTIVITAMIN [Concomitant]
  8. KLOR-CON [Concomitant]
  9. CELLCEPT [Concomitant]
  10. GLIMEPIRIDE [Concomitant]
  11. NEXIUM [Concomitant]
  12. DIGOXIN [Concomitant]
  13. BOSENTAN [Concomitant]
  14. FOSAMAX [Concomitant]
  15. AMARYL [Concomitant]
  16. ASPIRIN [Concomitant]
  17. CARDIZEM [Concomitant]
  18. POTASSIUM GLUCONATE [Concomitant]
  19. REVATIO [Concomitant]
  20. TRACLEER [Concomitant]
  21. VITAMIN C [Concomitant]

REACTIONS (5)
  - Lung transplant [Unknown]
  - Rash [Unknown]
  - Headache [Unknown]
  - Pain in jaw [Unknown]
  - Flushing [Unknown]
